FAERS Safety Report 11907122 (Version 5)
Quarter: 2016Q2

REPORT INFORMATION
  Report Type: Report from Study
  Country: DE (occurrence: DE)
  Receive Date: 20160111
  Receipt Date: 20160401
  Transmission Date: 20160815
  Serious: Yes (Other)
  Sender: FDA-Public Use
  Company Number: DE-CELGENE-062-21660-13033089

PATIENT

DRUGS (13)
  1. CYCLOPHOSPHAMIDE. [Concomitant]
     Active Substance: CYCLOPHOSPHAMIDE
     Indication: BREAST CANCER
     Dosage: G/M2
     Route: 065
  2. ABRAXANE [Suspect]
     Active Substance: PACLITAXEL
     Indication: BREAST CANCER
     Route: 041
  3. TRASTUZUMAB [Concomitant]
     Active Substance: TRASTUZUMAB
     Route: 065
  4. CYCLOPHOSPHAMIDE. [Concomitant]
     Active Substance: CYCLOPHOSPHAMIDE
     Route: 065
  5. ABRAXANE [Suspect]
     Active Substance: PACLITAXEL
     Route: 041
  6. PERTUZUMAB [Concomitant]
     Active Substance: PERTUZUMAB
     Indication: BREAST CANCER
     Route: 065
  7. PERTUZUMAB [Concomitant]
     Active Substance: PERTUZUMAB
     Route: 041
  8. TRASTUZUMAB [Concomitant]
     Active Substance: TRASTUZUMAB
     Indication: BREAST CANCER
     Route: 065
  9. DOCETAXEL. [Concomitant]
     Active Substance: DOCETAXEL
     Indication: BREAST CANCER
     Route: 065
  10. ABRAXANE [Suspect]
     Active Substance: PACLITAXEL
     Route: 041
  11. EPIRUBICIN [Concomitant]
     Active Substance: EPIRUBICIN
     Indication: BREAST CANCER
     Route: 065
  12. EPIRUBICIN [Concomitant]
     Active Substance: EPIRUBICIN
     Route: 065
  13. ABRAXANE [Suspect]
     Active Substance: PACLITAXEL
     Route: 041

REACTIONS (39)
  - Oesophagitis [Unknown]
  - Mucosal inflammation [Unknown]
  - Hypersensitivity [Unknown]
  - Anaemia [Unknown]
  - Peripheral sensory neuropathy [Unknown]
  - Blood alkaline phosphatase increased [Unknown]
  - Anaphylactic reaction [Unknown]
  - Macular oedema [Unknown]
  - Myalgia [Unknown]
  - Infection [Unknown]
  - Pulmonary embolism [Unknown]
  - Leukopenia [Unknown]
  - Febrile neutropenia [Unknown]
  - Palmar-plantar erythrodysaesthesia syndrome [Unknown]
  - Arthralgia [Unknown]
  - Cranial nerve disorder [Unknown]
  - Stomatitis [Unknown]
  - Alanine aminotransferase increased [Unknown]
  - Thrombocytopenia [Unknown]
  - Decreased appetite [Unknown]
  - Hypotension [Unknown]
  - Ejection fraction decreased [Unknown]
  - Aspartate aminotransferase increased [Unknown]
  - Rash maculo-papular [Unknown]
  - Cardiac failure congestive [Unknown]
  - Headache [Unknown]
  - Nausea [Unknown]
  - Disease progression [Unknown]
  - Alopecia [Unknown]
  - Haematotoxicity [Unknown]
  - Pyrexia [Unknown]
  - Vomiting [Unknown]
  - Blood creatinine increased [Unknown]
  - Fatigue [Unknown]
  - Epistaxis [Unknown]
  - Lymphopenia [Unknown]
  - Dyspnoea [Unknown]
  - Neutropenia [Unknown]
  - Diarrhoea [Unknown]
